FAERS Safety Report 13488472 (Version 1)
Quarter: 2017Q2

REPORT INFORMATION
  Report Type: Spontaneous
  Country: GB (occurrence: GB)
  Receive Date: 20170426
  Receipt Date: 20170426
  Transmission Date: 20170830
  Serious: Yes (Other)
  Sender: FDA-Public Use
  Company Number: PHHY2017GB059520

PATIENT
  Age: 12 Year
  Sex: Female

DRUGS (4)
  1. OMEPRAZOLE. [Suspect]
     Active Substance: OMEPRAZOLE
     Indication: PRODUCT USED FOR UNKNOWN INDICATION
     Route: 065
  2. OXYGEN. [Concomitant]
     Active Substance: OXYGEN
     Indication: GENERAL ANAESTHESIA
     Route: 065
  3. METHOTREXATE. [Interacting]
     Active Substance: METHOTREXATE
     Indication: ACUTE MYELOID LEUKAEMIA
     Route: 037
  4. NITROUS OXIDE. [Interacting]
     Active Substance: NITROUS OXIDE
     Indication: GENERAL ANAESTHESIA
     Route: 065

REACTIONS (3)
  - Drug interaction [Unknown]
  - Leukoencephalopathy [Recovered/Resolved]
  - Neurotoxicity [Recovering/Resolving]
